FAERS Safety Report 13857785 (Version 1)
Quarter: 2017Q3

REPORT INFORMATION
  Report Type: Spontaneous
  Country: US (occurrence: US)
  Receive Date: 20170811
  Receipt Date: 20170811
  Transmission Date: 20171127
  Serious: No
  Sender: FDA-Public Use
  Company Number: US-STRIDES ARCOLAB LIMITED-2017SP008813

PATIENT

DRUGS (3)
  1. SYNTHROID [Concomitant]
     Active Substance: LEVOTHYROXINE SODIUM
     Indication: HYPOTHYROIDISM
     Dosage: UNK
     Route: 065
  2. ERGOCALCIFEROL. [Suspect]
     Active Substance: ERGOCALCIFEROL
     Indication: VITAMIN D DEFICIENCY
     Dosage: 1.25 MG, 2 TIMES A WEEK
     Route: 048
     Dates: start: 20170501, end: 20170514
  3. LIOTHYRONINE [Concomitant]
     Active Substance: LIOTHYRONINE
     Indication: HYPOTHYROIDISM
     Dosage: UNK
     Route: 065

REACTIONS (1)
  - Urticaria [Recovered/Resolved]

NARRATIVE: CASE EVENT DATE: 201705
